FAERS Safety Report 6811215-7 (Version None)
Quarter: 2010Q2

REPORT INFORMATION
  Report Type: 
  Country: None (occurrence: None)
  Receive Date: 20100630
  Receipt Date: 20091007
  Transmission Date: 20101027
  Serious: No
  Sender: FDA-Public Use
  Company Number: US-AMGEN-KDL368455

PATIENT
  Sex: Male

DRUGS (14)
  1. PROCRIT [Suspect]
     Indication: RENAL FAILURE CHRONIC
  2. VITAMIN B [Concomitant]
     Route: 048
  3. FOLIC ACID [Concomitant]
     Route: 048
  4. FERROUS SULFATE TAB [Concomitant]
     Route: 048
  5. PROBENECID + COLCHINE [Concomitant]
     Route: 048
  6. LABETALOL HCL [Concomitant]
  7. FUROSEMIDE [Concomitant]
     Route: 048
  8. MINOXIDIL [Concomitant]
     Route: 048
  9. LISINOPRIL [Concomitant]
     Route: 048
  10. KLONOPIN [Concomitant]
     Route: 048
  11. ASPIRIN [Concomitant]
     Route: 048
  12. TERAZOSIN HCL [Concomitant]
  13. PRO-AIR (PARKE DAVIS) [Concomitant]
  14. FLOVENT [Concomitant]

REACTIONS (3)
  - DYSGEUSIA [None]
  - RENAL FAILURE CHRONIC [None]
  - WEIGHT DECREASED [None]
